FAERS Safety Report 14995931 (Version 1)
Quarter: 2018Q2

REPORT INFORMATION
  Report Type: Spontaneous
  Country: US (occurrence: US)
  Receive Date: 20180611
  Receipt Date: 20180611
  Transmission Date: 20180711
  Serious: Yes (Other)
  Sender: FDA-Public Use
  Company Number: US-VIVIMED-2018SP004423

PATIENT

DRUGS (2)
  1. METRONIDAZOLE. [Suspect]
     Active Substance: METRONIDAZOLE
     Indication: SKIN INFECTION
     Dosage: 500 MG, EVERY 8 HRS
     Route: 042
  2. SCOPOLAMINE                        /00008701/ [Suspect]
     Active Substance: SCOPOLAMINE
     Indication: DECREASED BRONCHIAL SECRETION
     Dosage: 1.5 MG, UNK
     Route: 062

REACTIONS (3)
  - Delirium [Recovered/Resolved]
  - Agitation [Recovered/Resolved]
  - Poverty of speech [Recovered/Resolved]
